FAERS Safety Report 6075154-4 (Version None)
Quarter: 2009Q1

REPORT INFORMATION
  Report Type: 
  Country: None (occurrence: None)
  Receive Date: 20090210
  Receipt Date: 20090210
  Transmission Date: 20090719
  Serious: Yes (Death)
  Sender: FDA-Public Use
  Company Number: None

PATIENT
  Age: 31 Year
  Sex: Male
  Weight: 67 kg

DRUGS (11)
  1. COVIRO LS 30 (LAMIVUDINE AND STAVUDINE) [Suspect]
     Indication: HIV INFECTION
     Dosage: QD ORAL
     Route: 048
     Dates: start: 20071206
  2. EFAVIRENZ [Suspect]
     Indication: HIV INFECTION
     Dosage: QD ORAL
     Route: 048
     Dates: start: 20071206
  3. AKURIT 4 [Suspect]
     Indication: TUBERCULOSIS
     Dosage: QD ORAL
     Route: 048
     Dates: start: 20071122
  4. AKURIT [Suspect]
     Indication: TUBERCULOSIS
     Dosage: QD ORAL
     Route: 048
     Dates: start: 20080131
  5. ETHAMBUTOL [Suspect]
     Indication: MYCOBACTERIUM AVIUM COMPLEX INFECTION
     Dosage: QD ORAL
     Route: 048
     Dates: start: 20080131
  6. LAMIVUDINE [Suspect]
     Indication: HIV INFECTION
     Dosage: QD ORAL
     Route: 048
     Dates: start: 20081212
  7. NEVIRAPINE [Suspect]
     Indication: HIV INFECTION
     Dosage: QD ORAL
     Route: 048
     Dates: start: 20081212
  8. FLUCONAZOLE [Concomitant]
  9. COTRIMOXAZOLE [Concomitant]
  10. CLARITHROMYCIN [Concomitant]
  11. ZIDOVUDINE [Concomitant]

REACTIONS (3)
  - LACTIC ACIDOSIS [None]
  - MYCOBACTERIUM AVIUM COMPLEX INFECTION [None]
  - NEUROPATHY PERIPHERAL [None]
